FAERS Safety Report 11058309 (Version 1)
Quarter: 2015Q2

REPORT INFORMATION
  Report Type: Spontaneous
  Country: US (occurrence: None)
  Receive Date: 20150422
  Receipt Date: 20150422
  Transmission Date: 20150821
  Serious: Yes (Hospitalization)
  Sender: FDA-Public Use
  Company Number: None

PATIENT
  Age: 75 Year
  Sex: Male
  Weight: 72.3 kg

DRUGS (1)
  1. ENOXAPARIN [Suspect]
     Active Substance: ENOXAPARIN
     Indication: INTERMITTENT CLAUDICATION
     Dates: start: 20150314, end: 20150322

REACTIONS (2)
  - Gastric haemorrhage [None]
  - Gastrointestinal arteriovenous malformation [None]

NARRATIVE: CASE EVENT DATE: 20150317
